FAERS Safety Report 13272565 (Version 1)
Quarter: 2017Q1

REPORT INFORMATION
  Report Type: Spontaneous
  Country: US (occurrence: US)
  Receive Date: 20170226
  Receipt Date: 20170226
  Transmission Date: 20170428
  Serious: Yes (Life-Threatening, Other)
  Sender: FDA-Public Use
  Company Number: None

PATIENT
  Age: 41 Year
  Sex: Female
  Weight: 153 kg

DRUGS (4)
  1. VARITHENA [Suspect]
     Active Substance: POLIDOCANOL
     Indication: VEIN DISORDER
     Dates: start: 20161115, end: 20170105
  2. NEXIUM [Concomitant]
     Active Substance: ESOMEPRAZOLE MAGNESIUM
  3. ALEVE [Concomitant]
     Active Substance: NAPROXEN SODIUM
  4. BIOTIN [Concomitant]
     Active Substance: BIOTIN

REACTIONS (10)
  - Cellulitis [None]
  - Oedema peripheral [None]
  - Pain [None]
  - Swelling [None]
  - Pruritus [None]
  - Skin exfoliation [None]
  - Infection [None]
  - Burning sensation [None]
  - Skin discolouration [None]
  - Limb discomfort [None]

NARRATIVE: CASE EVENT DATE: 20161115
